FAERS Safety Report 8376255-8 (Version None)
Quarter: 2012Q1

REPORT INFORMATION
  Report Type: 
  Country: None (occurrence: None)
  Receive Date: 20120323
  Receipt Date: 20110613
  Transmission Date: 20120608
  Serious: Yes (Other)
  Sender: FDA-Public Use
  Company Number: 163-21880-11062223

PATIENT
  Age: 67 Year
  Sex: Female
  Weight: 58.9676 kg

DRUGS (8)
  1. ASPIRIN [Concomitant]
  2. BONIVA [Concomitant]
  3. LASIX [Concomitant]
  4. PREDNISONE TAB [Concomitant]
  5. REVLIMID [Suspect]
     Indication: MYELOFIBROSIS
     Dosage: 10 MG, DAILY X 21 DAYS, PO
     Route: 048
     Dates: start: 20101001
  6. LOVAZA [Concomitant]
  7. NEXIUM [Concomitant]
  8. CETIRIZINE [Concomitant]

REACTIONS (6)
  - WEIGHT DECREASED [None]
  - GINGIVAL DISORDER [None]
  - DECREASED APPETITE [None]
  - MOUTH HAEMORRHAGE [None]
  - ABDOMINAL DISCOMFORT [None]
  - NAUSEA [None]
